FAERS Safety Report 4472663-6 (Version None)
Quarter: 2004Q4

REPORT INFORMATION
  Report Type: 
  Country: None (occurrence: None)
  Receive Date: 20041012
  Receipt Date: 20041012
  Transmission Date: 20050328
  Serious: Yes (Other)
  Sender: FDA-Public Use
  Company Number: None

PATIENT
  Age: 59 Year
  Sex: Female
  Weight: 73.4827 kg

DRUGS (2)
  1. NEURONTIN [Suspect]
     Indication: PAIN
     Dosage: 3X DAY
     Dates: start: 20031011
  2. TOPAMAX [Suspect]
     Indication: PAIN
     Dosage: 3 X 11 - REDUCED TO 1
     Dates: start: 20031112

REACTIONS (15)
  - ABNORMAL BEHAVIOUR [None]
  - ABNORMAL DREAMS [None]
  - ABNORMAL SENSATION IN EYE [None]
  - BACK PAIN [None]
  - CONFUSIONAL STATE [None]
  - COORDINATION ABNORMAL [None]
  - DRY MOUTH [None]
  - EYE REDNESS [None]
  - OEDEMA PERIPHERAL [None]
  - RASH [None]
  - SPEECH DISORDER [None]
  - THINKING ABNORMAL [None]
  - VISION BLURRED [None]
  - VISUAL DISTURBANCE [None]
  - WEIGHT INCREASED [None]
